FAERS Safety Report 5930604-6 (Version None)
Quarter: 2008Q4

REPORT INFORMATION
  Report Type: 
  Country: None (occurrence: None)
  Receive Date: 20081027
  Receipt Date: 20081017
  Transmission Date: 20090506
  Serious: Yes (Other)
  Sender: FDA-Public Use
  Company Number: US-JNJFOC-20081004882

PATIENT
  Sex: Female
  Weight: 81.65 kg

DRUGS (6)
  1. DURAGESIC-100 [Suspect]
     Indication: BACK PAIN
     Route: 062
  2. DURAGESIC-100 [Suspect]
     Indication: NEUROPATHY PERIPHERAL
     Route: 062
  3. GLUCATROL [Concomitant]
     Indication: BLOOD GLUCOSE INCREASED
     Route: 048
  4. PERCOCOT [Concomitant]
     Indication: PAIN
     Route: 048
  5. WARFARIN SODIUM [Concomitant]
     Indication: ANTICOAGULANT THERAPY
     Route: 048
  6. LYRICA [Concomitant]
     Indication: NEUROPATHY PERIPHERAL
     Route: 048

REACTIONS (8)
  - ABDOMINAL PAIN UPPER [None]
  - ASTHENIA [None]
  - DIARRHOEA [None]
  - GOITRE [None]
  - HYPERHIDROSIS [None]
  - HYPERTENSION [None]
  - HYPERTHYROIDISM [None]
  - TREATMENT NONCOMPLIANCE [None]
